FAERS Safety Report 22304727 (Version 1)
Quarter: 2023Q2

REPORT INFORMATION
  Report Type: Spontaneous
  Country: US (occurrence: US)
  Receive Date: 20230510
  Receipt Date: 20230510
  Transmission Date: 20230722
  Serious: Yes (Other)
  Sender: FDA-Public Use
  Company Number: US-ELI_LILLY_AND_COMPANY-US202305002884

PATIENT
  Sex: Female

DRUGS (14)
  1. HUMALOG KWIKPEN [Suspect]
     Active Substance: INSULIN LISPRO
     Indication: Type 2 diabetes mellitus
     Dosage: 25 U, EACH MORNING
     Route: 065
     Dates: start: 2013
  2. HUMALOG KWIKPEN [Suspect]
     Active Substance: INSULIN LISPRO
     Indication: Type 2 diabetes mellitus
     Dosage: 25 U, EACH MORNING
     Route: 065
     Dates: start: 2013
  3. HUMALOG KWIKPEN [Suspect]
     Active Substance: INSULIN LISPRO
     Dosage: 35 U, BID (AT LUNCH AND DINNER)
     Route: 065
     Dates: start: 2013
  4. HUMALOG KWIKPEN [Suspect]
     Active Substance: INSULIN LISPRO
     Dosage: 35 U, BID (AT LUNCH AND DINNER)
     Route: 065
     Dates: start: 2013
  5. HUMALOG KWIKPEN [Suspect]
     Active Substance: INSULIN LISPRO
     Dosage: 25 U, EACH MORNING
     Route: 065
     Dates: start: 2013
  6. HUMALOG KWIKPEN [Suspect]
     Active Substance: INSULIN LISPRO
     Dosage: 25 U, EACH MORNING
     Route: 065
     Dates: start: 2013
  7. HUMALOG KWIKPEN [Suspect]
     Active Substance: INSULIN LISPRO
     Dosage: 35 U, BID (AT LUNCH AND DINNER)
     Route: 065
     Dates: start: 2013
  8. HUMALOG KWIKPEN [Suspect]
     Active Substance: INSULIN LISPRO
     Dosage: 35 U, BID (AT LUNCH AND DINNER)
     Route: 065
     Dates: start: 2013
  9. HUMALOG KWIKPEN [Suspect]
     Active Substance: INSULIN LISPRO
     Dosage: 25 U, EACH MORNING
     Route: 065
     Dates: start: 2013
  10. HUMALOG KWIKPEN [Suspect]
     Active Substance: INSULIN LISPRO
     Dosage: 25 U, EACH MORNING
     Route: 065
     Dates: start: 2013
  11. HUMALOG KWIKPEN [Suspect]
     Active Substance: INSULIN LISPRO
     Dosage: 25 U, EACH MORNING
     Route: 065
     Dates: start: 2013
  12. HUMALOG KWIKPEN [Suspect]
     Active Substance: INSULIN LISPRO
     Dosage: 35 U, BID (AT LUNCH AND DINNER)
     Route: 065
     Dates: start: 2013
  13. HUMALOG KWIKPEN [Suspect]
     Active Substance: INSULIN LISPRO
     Dosage: 35 U, BID (AT LUNCH AND DINNER)
     Route: 065
     Dates: start: 2013
  14. HUMALOG KWIKPEN [Suspect]
     Active Substance: INSULIN LISPRO
     Dosage: 35 U, BID (AT LUNCH AND DINNER)
     Route: 065
     Dates: start: 2013

REACTIONS (1)
  - Arthritis [Unknown]
